FAERS Safety Report 5676302-8 (Version None)
Quarter: 2008Q1

REPORT INFORMATION
  Report Type: 
  Country: None (occurrence: None)
  Receive Date: 20080321
  Receipt Date: 20080313
  Transmission Date: 20080703
  Serious: Yes (Other)
  Sender: FDA-Public Use
  Company Number: US-GILEAD-2008-0015464

PATIENT
  Sex: Female

DRUGS (6)
  1. LETAIRIS [Suspect]
     Indication: PULMONARY HYPERTENSION
     Dates: start: 20080126, end: 20080226
  2. TRACLEER [Concomitant]
  3. TORSEMIDE [Concomitant]
     Route: 048
  4. TOPROL [Concomitant]
     Route: 048
  5. LANOXIN [Concomitant]
     Route: 048
  6. COZAAR [Concomitant]
     Route: 048

REACTIONS (3)
  - DYSURIA [None]
  - OEDEMA [None]
  - TINNITUS [None]
